FAERS Safety Report 9917968 (Version 2)
Quarter: 2014Q2

REPORT INFORMATION
  Report Type: Spontaneous
  Country: JP (occurrence: JP)
  Receive Date: 20140222
  Receipt Date: 20140407
  Transmission Date: 20141212
  Serious: Yes (Hospitalization)
  Sender: FDA-Public Use
  Company Number: JP-009507513-1402JPN007584

PATIENT
  Age: 79 Year
  Sex: Female

DRUGS (1)
  1. PEGINTRON [Suspect]
     Indication: PRURITUS
     Dosage: 25 MICROGRAM, UNK, HALF OF 50 MICROGRAM VIAL OF CONTAINER
     Route: 058
     Dates: start: 20140210

REACTIONS (3)
  - Dysuria [Recovering/Resolving]
  - Muscular weakness [Recovered/Resolved]
  - Nausea [Recovered/Resolved]
